FAERS Safety Report 7220558-7 (Version None)
Quarter: 2011Q1

REPORT INFORMATION
  Report Type: 
  Country: None (occurrence: None)
  Receive Date: 20110111
  Receipt Date: 20101222
  Transmission Date: 20110831
  Serious: No
  Sender: FDA-Public Use
  Company Number: US-B.I. PHARMACEUTICALS,INC./RIDGEFIELD-2010-BP-15404BP

PATIENT
  Sex: Female

DRUGS (5)
  1. OMEPRAZOLE [Concomitant]
     Route: 048
  2. NORCO [Concomitant]
     Indication: POSTOPERATIVE ANALGESIA
     Route: 048
  3. PRADAXA [Suspect]
     Indication: ATRIAL FIBRILLATION
     Dosage: 300 MG
     Route: 048
     Dates: start: 20101221
  4. DIGOXIN [Concomitant]
     Route: 048
  5. LEVOTHYROXINE SODIUM [Concomitant]
     Route: 048

REACTIONS (2)
  - HEADACHE [None]
  - NAUSEA [None]
